FAERS Safety Report 11718782 (Version 1)
Quarter: 2015Q4

REPORT INFORMATION
  Report Type: Spontaneous
  Country: BR (occurrence: BR)
  Receive Date: 20151110
  Receipt Date: 20151110
  Transmission Date: 20160304
  Serious: Yes (Hospitalization, Other)
  Sender: FDA-Public Use
  Company Number: BR-GLAXOSMITHKLINE-BR2015GSK159544

PATIENT
  Sex: Male
  Weight: 88 kg

DRUGS (8)
  1. ASPIRIN 100 [Concomitant]
     Active Substance: ASPIRIN
     Indication: CARDIAC DISORDER
     Dosage: 1 UNK, QD
     Dates: start: 2008
  2. VASTAREL [Concomitant]
     Active Substance: TRIMETAZIDINE DIHYDROCHLORIDE
     Indication: CARDIAC DISORDER
     Dosage: 1 TABLET, QD
     Dates: start: 2012
  3. SERETIDE [Suspect]
     Active Substance: FLUTICASONE FUROATE\SALMETEROL XINAFOATE
     Indication: RESPIRATORY DISORDER
     Dosage: 1 PUFF(S), BID
     Dates: start: 2012
  4. ROSUVASTATINE [Concomitant]
     Active Substance: ROSUVASTATIN
     Indication: PRODUCT USED FOR UNKNOWN INDICATION
     Dosage: 10 MG, QD
  5. CHAMPIX (VARENICLINE TARTRATE) [Suspect]
     Active Substance: VARENICLINE TARTRATE
     Indication: PRODUCT USED FOR UNKNOWN INDICATION
     Dosage: 11 TABLETS, UNK, 0.5MG
     Route: 048
     Dates: start: 201508
  6. LYRICA [Concomitant]
     Active Substance: PREGABALIN
     Indication: FIBROMYALGIA
     Dosage: UNK
     Dates: start: 2014
  7. CHAMPIX (VARENICLINE TARTRATE) [Suspect]
     Active Substance: VARENICLINE TARTRATE
     Dosage: 12 DF, UNK,1
     Dates: start: 201508
  8. LITHIUM. [Suspect]
     Active Substance: LITHIUM
     Indication: PRODUCT USED FOR UNKNOWN INDICATION
     Dosage: UNK
     Dates: end: 20151019

REACTIONS (6)
  - Tremor [Unknown]
  - Toxicity to various agents [Unknown]
  - Asthenia [Unknown]
  - Diarrhoea [Unknown]
  - Loss of consciousness [Unknown]
  - Malaise [Unknown]
